FAERS Safety Report 9531139 (Version 2)
Quarter: 2013Q4

REPORT INFORMATION
  Report Type: Spontaneous
  Country: FR (occurrence: FR)
  Receive Date: 20130918
  Receipt Date: 20131226
  Transmission Date: 20140711
  Serious: Yes (Hospitalization, Other)
  Sender: FDA-Public Use
  Company Number: FR-ASTRAZENECA-2013SE69158

PATIENT
  Sex: Male
  Weight: 100 kg

DRUGS (4)
  1. XEROQUEL [Suspect]
     Indication: CHILDHOOD PSYCHOSIS
     Dosage: DOSE PROGRESSIVELY INCREASED TO 800 MG DAY (TWO TABLETS OF 400 MG)
     Route: 048
     Dates: start: 20130110, end: 20130326
  2. XEROQUEL [Suspect]
     Indication: CHILDHOOD PSYCHOSIS
     Route: 048
     Dates: start: 20130326, end: 20130330
  3. XEROQUEL [Suspect]
     Indication: CHILDHOOD PSYCHOSIS
     Route: 048
     Dates: start: 20130330, end: 20130410
  4. HALDOL [Concomitant]
     Indication: PSYCHOTIC DISORDER
     Route: 048
     Dates: start: 20130402

REACTIONS (7)
  - Confusional state [Not Recovered/Not Resolved]
  - Anxiety [Not Recovered/Not Resolved]
  - Anger [Not Recovered/Not Resolved]
  - Delirium [Not Recovered/Not Resolved]
  - Tension [Not Recovered/Not Resolved]
  - Mental disorder [Not Recovered/Not Resolved]
  - Agitation [Not Recovered/Not Resolved]
